FAERS Safety Report 12802205 (Version 1)
Quarter: 2016Q3

REPORT INFORMATION
  Report Type: Spontaneous
  Country: US (occurrence: US)
  Receive Date: 20160930
  Receipt Date: 20160930
  Transmission Date: 20161109
  Serious: Yes (Life-Threatening, Hospitalization)
  Sender: FDA-Public Use
  Company Number: None

PATIENT
  Age: 2 Year
  Sex: Female

DRUGS (1)
  1. BABY ORAJEL NOS (BENZOCAINE) [Suspect]
     Active Substance: BENZOCAINE
     Indication: TEETHING
     Route: 048

REACTIONS (2)
  - Product formulation issue [None]
  - Methaemoglobinaemia [None]

NARRATIVE: CASE EVENT DATE: 20110719
